FAERS Safety Report 10075869 (Version 1)
Quarter: 2014Q2

REPORT INFORMATION
  Report Type: Spontaneous
  Country: US (occurrence: US)
  Receive Date: 20140414
  Receipt Date: 20140414
  Transmission Date: 20141212
  Serious: Yes (Death)
  Sender: FDA-Public Use
  Company Number: US-PFIZER INC-2014100755

PATIENT
  Age: 55 Year
  Sex: Male

DRUGS (2)
  1. SPIRONOLACTONE [Suspect]
     Indication: FEMINISATION ACQUIRED
     Dosage: 100 MG, DAILY
  2. ESTRADIOL [Concomitant]
     Indication: FEMINISATION ACQUIRED
     Dosage: 100 UG, DAILY
     Route: 062

REACTIONS (7)
  - Drug abuse [Fatal]
  - Cardiac arrest [Fatal]
  - Brain death [Fatal]
  - Hyperkalaemia [Fatal]
  - Ventricular tachycardia [Fatal]
  - Gynaecomastia [Not Recovered/Not Resolved]
  - Secondary sexual characteristics absence [Not Recovered/Not Resolved]
